FAERS Safety Report 25167388 (Version 1)
Quarter: 2025Q2

REPORT INFORMATION
  Report Type: Spontaneous
  Country: US (occurrence: None)
  Receive Date: 20250405
  Receipt Date: 20250405
  Transmission Date: 20250716
  Serious: Yes (Hospitalization)
  Sender: FDA-CTU
  Company Number: None

PATIENT
  Age: 6 Year
  Sex: Female
  Weight: 20.2 kg

DRUGS (4)
  1. CARBOPLATIN [Suspect]
     Active Substance: CARBOPLATIN
  2. ETOPOSIDE [Suspect]
     Active Substance: ETOPOSIDE
  3. FILGRASTIM [Suspect]
     Active Substance: FILGRASTIM
  4. MELPHALAN [Suspect]
     Active Substance: MELPHALAN

REACTIONS (9)
  - Tachypnoea [None]
  - Pleural effusion [None]
  - Pulmonary oedema [None]
  - Human rhinovirus test positive [None]
  - Enterovirus test positive [None]
  - Haemoglobin decreased [None]
  - Thrombotic microangiopathy [None]
  - Complications of transplant surgery [None]
  - Allogenic stem cell transplantation [None]

NARRATIVE: CASE EVENT DATE: 20250403
